FAERS Safety Report 6476642-9 (Version None)
Quarter: 2009Q4

REPORT INFORMATION
  Report Type: 
  Country: None (occurrence: None)
  Receive Date: 20091204
  Receipt Date: 20091204
  Transmission Date: 20100525
  Serious: Yes (Death, Hospitalization)
  Sender: FDA-Public Use
  Company Number: None

PATIENT
  Sex: Male
  Weight: 75.7507 kg

DRUGS (16)
  1. TARCEVA [Suspect]
     Indication: RENAL CELL CARCINOMA
     Dosage: 150MG (1 PILL) QID ORAL
     Route: 048
     Dates: start: 20090324
  2. SUTENT [Suspect]
     Dosage: 50MG (1 PILL) QID ORAL
     Route: 048
     Dates: start: 20090324
  3. DURAGESIC-100 [Concomitant]
  4. OXYFAST [Concomitant]
  5. ATIVAN [Concomitant]
  6. SINEMET [Concomitant]
  7. LACTULOSE [Concomitant]
  8. ZOFRAN [Concomitant]
  9. POTASSIUM [Concomitant]
  10. NORVASC [Concomitant]
  11. HYDROXYZINE [Concomitant]
  12. BUPROPION HCL [Concomitant]
  13. SUSTAINED [Concomitant]
  14. CYCLOBENZAPRINE [Concomitant]
  15. SENNA [Concomitant]
  16. DOCUSATE SODIUM [Concomitant]

REACTIONS (3)
  - HYPERTENSION [None]
  - PAIN [None]
  - RENAL FAILURE ACUTE [None]
